FAERS Safety Report 17414763 (Version 2)
Quarter: 2020Q3

REPORT INFORMATION
  Report Type: Report from Study
  Country: CA (occurrence: CA)
  Receive Date: 20200213
  Receipt Date: 20200512
  Transmission Date: 20201104
  Serious: Yes (Hospitalization, Other)
  Sender: FDA-Public Use
  Company Number: CA-ROCHE-2542383

PATIENT
  Age: 53 Year
  Sex: Female
  Weight: 73.8 kg

DRUGS (8)
  1. POLATUZUMAB VEDOTIN. [Suspect]
     Active Substance: POLATUZUMAB VEDOTIN
     Indication: DIFFUSE LARGE B-CELL LYMPHOMA
     Dosage: ONGOING
     Route: 042
     Dates: start: 20200115
  2. BENDAMUSTINE [Suspect]
     Active Substance: BENDAMUSTINE
     Indication: DIFFUSE LARGE B-CELL LYMPHOMA
     Dosage: ONGOING
     Route: 042
     Dates: start: 20200113
  3. SYMBICORT [Concomitant]
     Active Substance: BUDESONIDE\FORMOTEROL FUMARATE DIHYDRATE
     Route: 065
  4. MORPHINE [Concomitant]
     Active Substance: MORPHINE
  5. TYLENOL [Concomitant]
     Active Substance: ACETAMINOPHEN
  6. MEPRON [Suspect]
     Active Substance: ATOVAQUONE
     Indication: INFECTION PROPHYLAXIS
     Route: 048
     Dates: start: 20200113, end: 20200128
  7. IMODIUM [Concomitant]
     Active Substance: LOPERAMIDE HYDROCHLORIDE
  8. RITUXIMAB. [Suspect]
     Active Substance: RITUXIMAB
     Indication: DIFFUSE LARGE B-CELL LYMPHOMA
     Dosage: ONGOING
     Route: 042
     Dates: start: 20200113

REACTIONS (17)
  - Discomfort [Recovered/Resolved]
  - Dysgeusia [Recovered/Resolved]
  - Mouth ulceration [Unknown]
  - Constipation [Recovered/Resolved]
  - Acute kidney injury [Recovering/Resolving]
  - Pancreatitis [Unknown]
  - Fatigue [Recovered/Resolved]
  - Fluid retention [Recovered/Resolved]
  - Dyspnoea exertional [Unknown]
  - Diarrhoea [Recovered/Resolved]
  - Alanine aminotransferase increased [Recovered/Resolved]
  - Dizziness [Unknown]
  - Abdominal pain [Recovered/Resolved]
  - Paraesthesia oral [Recovered/Resolved]
  - Muscle spasms [Unknown]
  - Palpitations [Recovered/Resolved]
  - Rash [Recovered/Resolved]

NARRATIVE: CASE EVENT DATE: 20200113
